APPROVED DRUG PRODUCT: METOPROLOL TARTRATE
Active Ingredient: METOPROLOL TARTRATE
Strength: 50MG
Dosage Form/Route: TABLET;ORAL
Application: A074644 | Product #001 | TE Code: AB
Applicant: SUN PHARMACEUTICAL INDUSTRIES INC
Approved: Dec 10, 1996 | RLD: No | RS: No | Type: RX